FAERS Safety Report 14522376 (Version 3)
Quarter: 2018Q2

REPORT INFORMATION
  Report Type: Spontaneous
  Country: US (occurrence: US)
  Receive Date: 20180212
  Receipt Date: 20180412
  Transmission Date: 20180711
  Serious: Yes (Hospitalization, Other)
  Sender: FDA-Public Use
  Company Number: US-ACTELION-A-NJ2018-166991

PATIENT
  Age: 53 Year
  Sex: Female

DRUGS (21)
  1. AMBRISENTAN [Suspect]
     Active Substance: AMBRISENTAN
     Indication: PULMONARY ARTERIAL HYPERTENSION
     Dosage: 10 MG, QD
     Route: 065
     Dates: start: 20170709, end: 20171107
  2. METOPROLOL. [Concomitant]
     Active Substance: METOPROLOL
  3. QUETIAPINE. [Concomitant]
     Active Substance: QUETIAPINE
  4. TOPIRAMATE. [Concomitant]
     Active Substance: TOPIRAMATE
  5. LORAZEPAM. [Concomitant]
     Active Substance: LORAZEPAM
  6. PREDNISONE. [Concomitant]
     Active Substance: PREDNISONE
  7. BUTALBITAL W/PARACETAMOL [Concomitant]
  8. DIPHENHYDRAMINE. [Concomitant]
     Active Substance: DIPHENHYDRAMINE
  9. ONDANSETRON [Concomitant]
     Active Substance: ONDANSETRON
  10. FERROUS SULFATE. [Concomitant]
     Active Substance: FERROUS SULFATE
  11. GLUCAGON. [Concomitant]
     Active Substance: GLUCAGON
  12. OXYCODONE [Concomitant]
     Active Substance: OXYCODONE
  13. AMIODARONE [Concomitant]
     Active Substance: AMIODARONE
  14. FUROSEMIDE. [Concomitant]
     Active Substance: FUROSEMIDE
  15. ROPINIROLE. [Concomitant]
     Active Substance: ROPINIROLE
  16. VELETRI [Suspect]
     Active Substance: EPOPROSTENOL
     Indication: PULMONARY ARTERIAL HYPERTENSION
     Dosage: UNK
     Route: 042
  17. NOVOLOG [Concomitant]
     Active Substance: INSULIN ASPART
  18. SODIUM CHLORIDE. [Concomitant]
     Active Substance: SODIUM CHLORIDE
  19. SILDENAFIL. [Concomitant]
     Active Substance: SILDENAFIL
     Indication: PULMONARY ARTERIAL HYPERTENSION
  20. ASPIRIN. [Concomitant]
     Active Substance: ASPIRIN
  21. DULOXETINE. [Concomitant]
     Active Substance: DULOXETINE

REACTIONS (26)
  - Device malfunction [Unknown]
  - Blood sodium decreased [Unknown]
  - Blood urea increased [Unknown]
  - Cough [Unknown]
  - Condition aggravated [Not Recovered/Not Resolved]
  - Headache [Not Recovered/Not Resolved]
  - Stress [Unknown]
  - Brain natriuretic peptide increased [Unknown]
  - Unevaluable event [Unknown]
  - Pneumonia [Unknown]
  - Flushing [Not Recovered/Not Resolved]
  - Abdominal pain upper [Recovered/Resolved]
  - Platelet count decreased [Unknown]
  - Aspartate aminotransferase decreased [Unknown]
  - Dyspnoea [Unknown]
  - Haemoglobin decreased [Unknown]
  - Alanine aminotransferase decreased [Unknown]
  - Oropharyngeal pain [Unknown]
  - Blood glucose increased [Unknown]
  - Dysphonia [Unknown]
  - Hypoxia [Not Recovered/Not Resolved]
  - Peripheral swelling [Recovered/Resolved]
  - Device deployment issue [Unknown]
  - Feeling abnormal [Recovered/Resolved]
  - Fatigue [Recovered/Resolved]
  - Blood alkaline phosphatase increased [Unknown]

NARRATIVE: CASE EVENT DATE: 201712
